FAERS Safety Report 16160447 (Version 1)
Quarter: 2019Q2

REPORT INFORMATION
  Report Type: Spontaneous
  Country: AR (occurrence: AR)
  Receive Date: 20190405
  Receipt Date: 20190405
  Transmission Date: 20190711
  Serious: Yes (Other)
  Sender: FDA-Public Use
  Company Number: AR-SUN PHARMACEUTICAL INDUSTRIES LTD-2019R1-204138

PATIENT
  Age: 34 Year
  Sex: Female

DRUGS (2)
  1. PREDNISONE. [Suspect]
     Active Substance: PREDNISONE
     Indication: BEHCET^S SYNDROME
     Dosage: UNK (30 MILLIGRAM)
     Route: 065
  2. METHOTREXATE. [Concomitant]
     Active Substance: METHOTREXATE
     Indication: PRODUCT USED FOR UNKNOWN INDICATION
     Dosage: 10 MILLIGRAM, WEEKLY
     Route: 065

REACTIONS (2)
  - Disease recurrence [Recovered/Resolved]
  - Visual acuity reduced [Recovering/Resolving]
